FAERS Safety Report 7444345-X (Version None)
Quarter: 2011Q2

REPORT INFORMATION
  Report Type: 
  Country: None (occurrence: None)
  Receive Date: 20110429
  Receipt Date: 20110415
  Transmission Date: 20111010
  Serious: Yes (Other)
  Sender: FDA-Public Use
  Company Number: TW-RANBAXY-2011RR-43118

PATIENT
  Age: 57 Year
  Sex: Male

DRUGS (1)
  1. MINOCYCLINE [Suspect]
     Indication: PLEURODESIS
     Dosage: 300 MG, UNK

REACTIONS (3)
  - CHEST PAIN [None]
  - PNEUMONITIS CHEMICAL [None]
  - DYSPNOEA [None]
